FAERS Safety Report 18665741 (Version 2)
Quarter: 2021Q1

REPORT INFORMATION
  Report Type: Spontaneous
  Country: FR (occurrence: FR)
  Receive Date: 20201226
  Receipt Date: 20210112
  Transmission Date: 20210419
  Serious: Yes (Death)
  Sender: FDA-Public Use
  Company Number: FR-ACCORD-212350

PATIENT
  Age: 75 Year
  Sex: Female
  Weight: 54 kg

DRUGS (18)
  1. AMLODIPINE [Concomitant]
     Active Substance: AMLODIPINE BESYLATE
     Route: 048
  2. GABAPENTIN. [Concomitant]
     Active Substance: GABAPENTIN
     Route: 048
  3. PARACETAMOL [Concomitant]
     Active Substance: ACETAMINOPHEN
     Route: 048
  4. ZAVICEFTA [Suspect]
     Active Substance: AVIBACTAM SODIUM\CEFTAZIDIME
     Indication: OSTEITIS
     Dosage: STRENGTH :2 G / 0.5 G, DATE OF LAST ADMINISTERED DOSE: 29?NOV?2020
     Route: 042
     Dates: start: 20200924
  5. DICLOFENAC [Concomitant]
     Active Substance: DICLOFENAC
     Route: 048
  6. SERESTA [Concomitant]
     Active Substance: OXAZEPAM
     Route: 048
  7. TRELEGY ELLIPTA [Concomitant]
     Active Substance: FLUTICASONE FUROATE\UMECLIDINIUM BROMIDE\VILANTEROL TRIFENATATE
     Route: 048
  8. IRON [Concomitant]
     Active Substance: IRON
     Route: 048
  9. ESCITALOPRAM [Concomitant]
     Active Substance: ESCITALOPRAM OXALATE
     Route: 048
  10. PRINCI B [Concomitant]
     Indication: PRODUCT USED FOR UNKNOWN INDICATION
     Dosage: 3 DOSAGE FORM
     Route: 048
  11. LOVENOX [Concomitant]
     Active Substance: ENOXAPARIN SODIUM
     Dosage: DOSE: 4000 IU
     Route: 058
  12. LANSOYL [Concomitant]
     Active Substance: MINERAL OIL
     Indication: PRODUCT USED FOR UNKNOWN INDICATION
     Route: 048
  13. NEFOPAM [Concomitant]
     Active Substance: NEFOPAM
     Dosage: DOSE: 3 DOSAGE FORM
     Route: 048
  14. PANTOPRAZOLE [Concomitant]
     Active Substance: PANTOPRAZOLE
     Route: 048
  15. TIGECYCLINE. [Suspect]
     Active Substance: TIGECYCLINE
     Indication: OSTEITIS
     Route: 058
     Dates: start: 20200924, end: 20201129
  16. IXPRIM [Concomitant]
     Active Substance: ACETAMINOPHEN\TRAMADOL HYDROCHLORIDE
     Route: 048
  17. FORLAX [Concomitant]
     Active Substance: POLYETHYLENE GLYCOL 4000
     Route: 048
  18. PROLIA [Concomitant]
     Active Substance: DENOSUMAB
     Route: 048

REACTIONS (1)
  - Pancreatitis acute [Fatal]

NARRATIVE: CASE EVENT DATE: 20201127
